FAERS Safety Report 10079056 (Version 2)
Quarter: 2014Q2

REPORT INFORMATION
  Report Type: Spontaneous
  Country: US (occurrence: US)
  Receive Date: 20140415
  Receipt Date: 20140415
  Transmission Date: 20141212
  Serious: Yes (Hospitalization, Other)
  Sender: FDA-Public Use
  Company Number: 2014SP000612

PATIENT
  Age: 58 Year
  Sex: Male

DRUGS (3)
  1. VANCOMYCIN [Suspect]
     Indication: EVIDENCE BASED TREATMENT
  2. AMIKACIN [Suspect]
     Indication: EVIDENCE BASED TREATMENT
  3. LEVOFLOXACIN [Concomitant]

REACTIONS (1)
  - Renal failure acute [Recovered/Resolved]
